FAERS Safety Report 19493020 (Version 2)
Quarter: 2021Q3

REPORT INFORMATION
  Report Type: Report from Study
  Country: FR (occurrence: FR)
  Receive Date: 20210705
  Receipt Date: 20210915
  Transmission Date: 20211014
  Serious: Yes (Hospitalization, Other)
  Sender: FDA-Public Use
  Company Number: FR-BRISTOL-MYERS SQUIBB COMPANY-BMS-2021-065054

PATIENT
  Age: 60 Year
  Sex: Male

DRUGS (1)
  1. NIVOLUMAB [Suspect]
     Active Substance: NIVOLUMAB
     Indication: SQUAMOUS CELL CARCINOMA OF HEAD AND NECK
     Dosage: 1 DOSE EVERY 14 DAYS
     Route: 042
     Dates: start: 20200922, end: 20210525

REACTIONS (2)
  - Lung disorder [Recovered/Resolved with Sequelae]
  - Pulmonary fibrosis [Unknown]

NARRATIVE: CASE EVENT DATE: 20210603
